FAERS Safety Report 8649465 (Version 4)
Quarter: 2012Q4

REPORT INFORMATION
  Report Type: 
  Country: JP (occurrence: JP)
  Receive Date: 20120705
  Receipt Date: 20120907
  Transmission Date: 20130627
  Serious: Yes (Hospitalization)
  Sender: FDA-Public Use
  Company Number: JP-AMGEN-JPNCT2012041178

PATIENT
  Age: 84 Year
  Sex: Female
  Weight: 44 kg

DRUGS (13)
  1. DENOSUMAB [Suspect]
     Indication: OSTEOPOROSIS
     Dosage: UNK UNK, q6mo
     Route: 058
     Dates: start: 20090625, end: 20101229
  2. CALCICHEW D3 [Concomitant]
     Dosage: UNK
     Route: 048
     Dates: start: 20090528, end: 20120611
  3. MAGMITT [Concomitant]
     Indication: CONSTIPATION
     Dosage: as Necessary
     Route: 048
  4. BIOFERMIN [Concomitant]
     Indication: CONSTIPATION
     Route: 048
  5. LOCHOL [Concomitant]
     Indication: HYPERLIPIDAEMIA
     Route: 048
     Dates: start: 20100312
  6. BLOPRESS [Concomitant]
     Indication: HYPERTENSION
     Route: 048
     Dates: start: 20100618
  7. FALKEN [Concomitant]
     Indication: SPINAL OSTEOARTHRITIS
     Dosage: as Necessary
     Route: 062
  8. CHONDRON [Concomitant]
     Indication: OSTEOARTHRITIS
     Dosage: as Necessary
     Route: 030
     Dates: start: 20100628
  9. ISODINE GARGLE [Concomitant]
     Indication: NASOPHARYNGITIS
     Dosage: Adequate
     Route: 050
     Dates: start: 20100416
  10. VASOLAN [Concomitant]
     Indication: ARRHYTHMIA
     Route: 048
     Dates: start: 20100811
  11. HYALEIN [Concomitant]
     Indication: DRY EYE
     Dosage: Adequate/as Necessary
     Route: 031
     Dates: start: 20100824
  12. FERROMIA [Concomitant]
     Indication: ANAEMIA
     Route: 048
     Dates: start: 20100916
  13. LOXONIN [Concomitant]
     Indication: SPINAL OSTEOARTHRITIS
     Dosage: Adequate
     Route: 062
     Dates: start: 20101101

REACTIONS (1)
  - Pancreatic carcinoma [Recovering/Resolving]
